FAERS Safety Report 6379359-4 (Version None)
Quarter: 2009Q3

REPORT INFORMATION
  Report Type: 
  Country: None (occurrence: None)
  Receive Date: 20090923
  Receipt Date: 20090923
  Transmission Date: 20100115
  Serious: No
  Sender: FDA-Public Use
  Company Number: None

PATIENT
  Age: 53 Year
  Sex: Male
  Weight: 86.1834 kg

DRUGS (15)
  1. HEPARIN [Suspect]
     Indication: THROMBOSIS PROPHYLAXIS
     Dosage: 5000 UNITS SQ Q8
     Dates: start: 20081018, end: 20081111
  2. HEPARIN [Suspect]
     Indication: THROMBOSIS PROPHYLAXIS
     Dosage: 5000 UNITS SQ Q8
     Dates: start: 20081115, end: 20081120
  3. LEVOTHYROXINE SODIUM [Concomitant]
  4. THIAMINE HCL [Concomitant]
  5. SENNA [Concomitant]
  6. M.V.I. [Concomitant]
  7. PSYLLIUM [Concomitant]
  8. LANSOPRAZOLE [Concomitant]
  9. LACTOBACILLUS [Concomitant]
  10. ASPART INSULIN [Concomitant]
  11. LEVETIRACETAM [Concomitant]
  12. DESMOPRESSIN ACETATE [Concomitant]
  13. METHYLPHENIDATE HCL [Concomitant]
  14. ESCITALOPRAM [Concomitant]
  15. HYDROCORTISONE [Concomitant]

REACTIONS (1)
  - ACTIVATED PARTIAL THROMBOPLASTIN TIME PROLONGED [None]
